FAERS Safety Report 5222419-1 (Version None)
Quarter: 2007Q1

REPORT INFORMATION
  Report Type: 
  Country: None (occurrence: None)
  Receive Date: 20070129
  Receipt Date: 20061121
  Transmission Date: 20070707
  Serious: No
  Sender: FDA-Public Use
  Company Number: US-BRISTOL-MYERS SQUIBB COMPANY-13587902

PATIENT
  Age: 51 Year
  Sex: Female

DRUGS (11)
  1. DESYREL [Suspect]
     Indication: DEPRESSION
     Route: 048
     Dates: start: 20061027, end: 20061102
  2. LEXAPRO [Suspect]
     Indication: PANIC ATTACK
     Route: 048
     Dates: start: 20061027
  3. LEXAPRO [Suspect]
     Indication: DEPRESSION
     Route: 048
     Dates: start: 20061027
  4. TRILEPTAL [Suspect]
     Indication: DISTURBANCE IN ATTENTION
     Route: 048
     Dates: start: 20061027
  5. KLONOPIN [Suspect]
     Indication: PANIC ATTACK
     Dates: start: 20061027
  6. ZYRTEC [Concomitant]
  7. VITAMIN B COMPLEX CAP [Concomitant]
     Route: 030
  8. GRAPESEED EXTRACT [Concomitant]
  9. ASCORBIC ACID [Concomitant]
  10. METHYLSULFONYLMETHANE [Concomitant]
  11. IRON [Concomitant]

REACTIONS (6)
  - ANORGASMIA [None]
  - DISTURBANCE IN ATTENTION [None]
  - FALL [None]
  - FATIGUE [None]
  - SOMNOLENCE [None]
  - VERTIGO [None]
